FAERS Safety Report 5475923-5 (Version None)
Quarter: 2007Q4

REPORT INFORMATION
  Report Type: 
  Country: None (occurrence: None)
  Receive Date: 20071003
  Receipt Date: 20070924
  Transmission Date: 20080405
  Serious: Yes (Other)
  Sender: FDA-Public Use
  Company Number: FR-ELI_LILLY_AND_COMPANY-FR200707006487

PATIENT
  Age: 79 Year
  Sex: Female
  Weight: 55 kg

DRUGS (8)
  1. METHOTREXATE [Concomitant]
     Indication: RHEUMATOID ARTHRITIS
     Dosage: 7.5 MG, WEEKLY (1/W)
     Route: 048
     Dates: start: 19980101
  2. CORTANCYL [Concomitant]
     Indication: RHEUMATOID ARTHRITIS
     Dosage: 7.5 MG, DAILY (1/D)
     Route: 048
     Dates: start: 19980101
  3. SPECIAFOLDINE [Concomitant]
     Dosage: 0.5 D/F, EACH EVENING
     Route: 048
  4. BEDELIX [Concomitant]
  5. ZOPICLONE [Concomitant]
     Dosage: 1 D/F, EACH EVENING
     Route: 048
  6. DIMETICONE [Concomitant]
     Dosage: UNK, DAILY (1/D)
  7. PHLOROGLUCINOL [Concomitant]
     Dosage: UNK, DAILY (1/D)
  8. FORTEO [Suspect]
     Indication: OSTEOPOROSIS
     Dosage: 20 UG, DAILY (1/D)
     Route: 058
     Dates: start: 20060531

REACTIONS (3)
  - EPISTAXIS [None]
  - HYPERTENSION [None]
  - TRANSIENT ISCHAEMIC ATTACK [None]
